FAERS Safety Report 8050412-2 (Version None)
Quarter: 2012Q1

REPORT INFORMATION
  Report Type: 
  Country: None (occurrence: None)
  Receive Date: 20120117
  Receipt Date: 20120106
  Transmission Date: 20120608
  Serious: Yes (Death, Hospitalization)
  Sender: FDA-Public Use
  Company Number: US-ACTELION-A-NJ2011-46348

PATIENT

DRUGS (2)
  1. REVATIO [Concomitant]
  2. TRACLEER [Suspect]
     Indication: PULMONARY ARTERIAL HYPERTENSION
     Dosage: UNK
     Route: 048
     Dates: start: 20100616

REACTIONS (6)
  - CARDIAC DISORDER [None]
  - IMPAIRED HEALING [None]
  - WOUND [None]
  - STENT PLACEMENT [None]
  - DEATH [None]
  - MUSCULOSKELETAL STIFFNESS [None]
